FAERS Safety Report 9888239 (Version 1)
Quarter: 2014Q1

REPORT INFORMATION
  Report Type: Spontaneous
  Country: DK (occurrence: DK)
  Receive Date: 20140211
  Receipt Date: 20140211
  Transmission Date: 20141002
  Serious: Yes (Hospitalization)
  Sender: FDA-Public Use
  Company Number: PHHY2014DK012152

PATIENT
  Age: 57 Year
  Sex: Male

DRUGS (7)
  1. DICLON [Suspect]
     Indication: PAIN
  2. MANDOLGIN RETARD [Suspect]
     Indication: PAIN
     Route: 048
  3. SUMATRIPTAN [Suspect]
     Indication: PAIN
  4. BURANA [Suspect]
     Indication: PAIN
     Route: 048
  5. PANODIL [Suspect]
     Indication: PAIN
  6. DOLOL [Suspect]
     Indication: PAIN
     Dosage: 50 MG, UNK
     Route: 048
  7. IMOCLONE [Suspect]
     Indication: PAIN
     Route: 048

REACTIONS (3)
  - Supraventricular tachycardia [Unknown]
  - Non-cardiac chest pain [Unknown]
  - Palpitations [Unknown]
